FAERS Safety Report 15627276 (Version 3)
Quarter: 2021Q2

REPORT INFORMATION
  Report Type: Report from Study
  Country: CA (occurrence: CA)
  Receive Date: 20181116
  Receipt Date: 20210602
  Transmission Date: 20210716
  Serious: Yes (Hospitalization)
  Sender: FDA-Public Use
  Company Number: CA-EISAI MEDICAL RESEARCH-EC-2018-035928

PATIENT
  Age: 61 Year
  Sex: Female
  Weight: 97.3 kg

DRUGS (24)
  1. TYLENOL ARTHRITIS PAIN [Suspect]
     Active Substance: ACETAMINOPHEN
     Dosage: UNKNOWN
     Dates: end: 2018
  2. NORVASC [Concomitant]
     Active Substance: AMLODIPINE BESYLATE
  3. SYNTHROID [Concomitant]
     Active Substance: LEVOTHYROXINE SODIUM
  4. FLOVENT [Concomitant]
     Active Substance: FLUTICASONE PROPIONATE
  5. VENTOLIN [Concomitant]
     Active Substance: ALBUTEROL SULFATE
  6. LENVIMA [Suspect]
     Active Substance: LENVATINIB
     Route: 048
     Dates: start: 20180309, end: 201805
  7. LENVIMA [Suspect]
     Active Substance: LENVATINIB
     Route: 048
     Dates: start: 20180507, end: 201806
  8. LENVIMA [Suspect]
     Active Substance: LENVATINIB
     Route: 048
     Dates: start: 201902, end: 2019
  9. LENVIMA [Suspect]
     Active Substance: LENVATINIB
     Route: 048
     Dates: start: 20210506
  10. TYLENOL ARTHRITIS PAIN [Suspect]
     Active Substance: ACETAMINOPHEN
     Indication: PRODUCT USED FOR UNKNOWN INDICATION
     Dosage: UNKNOWN
     Dates: end: 2018
  11. NAPROXEN. [Suspect]
     Active Substance: NAPROXEN
     Indication: PRODUCT USED FOR UNKNOWN INDICATION
     Dosage: UNKNOWN
     Dates: end: 2018
  12. GABAPENTIN. [Concomitant]
     Active Substance: GABAPENTIN
  13. MELATONIN [Concomitant]
     Active Substance: MELATONIN
  14. LENVIMA [Suspect]
     Active Substance: LENVATINIB
     Route: 048
     Dates: start: 201807, end: 201810
  15. NAPROXEN. [Suspect]
     Active Substance: NAPROXEN
     Dosage: UNKNOWN
     Dates: end: 2018
  16. CITALOPRAM [Concomitant]
     Active Substance: CITALOPRAM HYDROBROMIDE
  17. PANTOPRAZOLE [Concomitant]
     Active Substance: PANTOPRAZOLE
  18. LENVIMA [Suspect]
     Active Substance: LENVATINIB
     Route: 048
     Dates: start: 20180611, end: 201807
  19. ACEBUTOLOL [Concomitant]
     Active Substance: ACEBUTOLOL
  20. ASA [Concomitant]
     Active Substance: ASPIRIN
  21. VITAMIN D [Concomitant]
     Active Substance: VITAMIN D NOS
  22. ATIVAN PRN [Concomitant]
  23. LENVIMA [Suspect]
     Active Substance: LENVATINIB
     Indication: THYROID CANCER
     Route: 048
     Dates: start: 20180202, end: 20180302
  24. VITAMIN B [Concomitant]
     Active Substance: VITAMIN B

REACTIONS (12)
  - Arthralgia [Not Recovered/Not Resolved]
  - Oral pain [Unknown]
  - Anxiety [Unknown]
  - Diverticulitis [Unknown]
  - Constipation [Recovered/Resolved]
  - Protein urine present [Unknown]
  - Intestinal perforation [Unknown]
  - Pneumonia [Unknown]
  - Muscle spasms [Not Recovered/Not Resolved]
  - Abscess [Unknown]
  - Diarrhoea [Unknown]
  - Blood pressure increased [Recovering/Resolving]

NARRATIVE: CASE EVENT DATE: 2018
